FAERS Safety Report 5787766-3 (Version None)
Quarter: 2008Q2

REPORT INFORMATION
  Report Type: 
  Country: None (occurrence: None)
  Receive Date: 20080624
  Receipt Date: 20080624
  Transmission Date: 20081010
  Serious: Yes (Death)
  Sender: FDA-Public Use
  Company Number: None

PATIENT
  Sex: Female

DRUGS (12)
  1. REVLIMID [Suspect]
     Indication: MULTIPLE MYELOMA
     Dosage: 10MG TIW AFTER DIALYSIS PO
     Route: 048
  2. DEXAMETHASONE [Concomitant]
  3. VICODIN [Concomitant]
  4. FENTANYL [Concomitant]
  5. MEGESTROL ACETATE [Concomitant]
  6. ZOLPIDEM [Concomitant]
  7. FLUTICASONE PROPIONATE [Concomitant]
  8. METOPROLOL SUCCINATE [Concomitant]
  9. SIMVASTATIN [Concomitant]
  10. HYDRALAZINE HCL [Concomitant]
  11. PROCHLORPERAZINE [Concomitant]
  12. RENAGEL [Concomitant]

REACTIONS (5)
  - DISEASE PROGRESSION [None]
  - FALL [None]
  - MENTAL STATUS CHANGES [None]
  - MULTIPLE MYELOMA [None]
  - PANCYTOPENIA [None]
